FAERS Safety Report 6127748-5 (Version None)
Quarter: 2009Q1

REPORT INFORMATION
  Report Type: 
  Country: None (occurrence: None)
  Receive Date: 20090323
  Receipt Date: 20090312
  Transmission Date: 20090719
  Serious: Yes (Hospitalization, Disabling)
  Sender: FDA-Public Use
  Company Number: DE-AMGEN-UK284119

PATIENT
  Sex: Male

DRUGS (13)
  1. PANITUMUMAB [Suspect]
     Indication: SQUAMOUS CELL CARCINOMA
     Route: 042
     Dates: start: 20080519, end: 20080519
  2. PANITUMUMAB [Suspect]
     Route: 042
     Dates: start: 20080611
  3. CISPLATIN [Concomitant]
     Route: 042
     Dates: start: 20080519
  4. FLUOROURACIL [Concomitant]
     Route: 042
  5. ADALAT [Concomitant]
     Route: 048
     Dates: start: 20080519
  6. ENALAPRIL [Concomitant]
     Route: 048
     Dates: start: 20060401
  7. LYRICA [Concomitant]
     Route: 048
  8. NOCTAMID [Concomitant]
     Route: 048
     Dates: start: 20080513
  9. NOVALGIN [Concomitant]
     Route: 048
     Dates: start: 20080514
  10. PREDNISOLONE [Concomitant]
     Route: 048
     Dates: start: 20080425
  11. SIMVASTATIN [Concomitant]
     Dates: start: 20070401
  12. OMEPRAZOLE [Concomitant]
     Route: 048
     Dates: start: 20080416, end: 20080531
  13. RADIATION THERAPY [Concomitant]
     Route: 065

REACTIONS (3)
  - GENERAL PHYSICAL HEALTH DETERIORATION [None]
  - GLOSSITIS [None]
  - MUCOSAL INFLAMMATION [None]
